APPROVED DRUG PRODUCT: URACIL MUSTARD
Active Ingredient: URACIL MUSTARD
Strength: 1MG
Dosage Form/Route: CAPSULE;ORAL
Application: N012892 | Product #001
Applicant: SHIRE DEVELOPMENT INC
Approved: Approved Prior to Jan 1, 1982 | RLD: No | RS: No | Type: DISCN